FAERS Safety Report 12241213 (Version 1)
Quarter: 2016Q2

REPORT INFORMATION
  Report Type: Report from Study
  Country: DK (occurrence: DK)
  Receive Date: 20160406
  Receipt Date: 20160406
  Transmission Date: 20160815
  Serious: Yes (Other)
  Sender: FDA-Public Use
  Company Number: DK-ROCHE-1733844

PATIENT
  Sex: Female

DRUGS (2)
  1. VINORELBINE [Suspect]
     Active Substance: VINORELBINE\VINORELBINE TARTRATE
     Indication: BREAST CANCER
     Dosage: VINORELBINE 60 MG/M2 DAY 1 + DAY 8 IN THE FIRST CYCLE FOLLOWED BY 80 MG/M2 DAY 1 + DAY 8 IN THE FOLL
     Route: 048
  2. CAPECITABINE. [Suspect]
     Active Substance: CAPECITABINE
     Indication: BREAST CANCER
     Dosage: FOR DAY 1-14
     Route: 065

REACTIONS (3)
  - Febrile neutropenia [Unknown]
  - Embolism [Unknown]
  - Alopecia [Unknown]
